FAERS Safety Report 9855130 (Version 1)
Quarter: 2014Q1

REPORT INFORMATION
  Report Type: Spontaneous
  Country: CA (occurrence: None)
  Receive Date: 20140127
  Receipt Date: 20140127
  Transmission Date: 20141002
  Serious: Yes (Life-Threatening)
  Sender: FDA-Public Use
  Company Number: DSU-2014-00101

PATIENT
  Age: 84 Year
  Sex: Female
  Weight: 63.5 kg

DRUGS (2)
  1. OLMETEC (OLMESARTAN MEDOXOMIL) (20 MILLIGRAM, TABLET) (OLMESARTAN MEDOXOMIL) [Suspect]
     Indication: PRODUCT USED FOR UNKNOWN INDICATION
     Route: 048
  2. LOSARTAN [Suspect]
     Indication: PRODUCT USED FOR UNKNOWN INDICATION
     Route: 048

REACTIONS (11)
  - Abdominal discomfort [None]
  - Constipation [None]
  - Dizziness [None]
  - Drug hypersensitivity [None]
  - Dyspepsia [None]
  - Flatulence [None]
  - Headache [None]
  - Nausea [None]
  - Product substitution issue [None]
  - Speech disorder [None]
  - Swollen tongue [None]
